FAERS Safety Report 7646319-2 (Version None)
Quarter: 2011Q3

REPORT INFORMATION
  Report Type: 
  Country: None (occurrence: None)
  Receive Date: 20110725
  Receipt Date: 20110708
  Transmission Date: 20111222
  Serious: Yes (Hospitalization)
  Sender: FDA-Public Use
  Company Number: AUR-APL-2011-04171

PATIENT
  Age: 81 Year
  Sex: Female
  Weight: 72.56 kg

DRUGS (8)
  1. SIMVASTATIN [Suspect]
     Indication: BLOOD CHOLESTEROL INCREASED
     Dosage: (40 MG,AT BEDTIME),ORAL
     Route: 048
     Dates: start: 20110523, end: 20110501
  2. SUCRALFATE [Concomitant]
  3. SIMVASTATIN [Suspect]
     Indication: PRODUCT USED FOR UNKNOWN INDICATION
  4. SERTRALINE HYDROCHLORIDE [Concomitant]
  5. ALPRAZOLAM [Concomitant]
  6. OXYCODONE-APAP (OXYCODONE/APAP) [Concomitant]
  7. CHONDROITIN/GLUCOSAMINE (JOINT FOOD) [Concomitant]
  8. LOPID [Concomitant]

REACTIONS (9)
  - CRYING [None]
  - FATIGUE [None]
  - INSOMNIA [None]
  - SCREAMING [None]
  - VOMITING [None]
  - ABDOMINAL PAIN UPPER [None]
  - PAIN [None]
  - FOOD POISONING [None]
  - NIGHTMARE [None]
